FAERS Safety Report 11454992 (Version 1)
Quarter: 2015Q3

REPORT INFORMATION
  Report Type: Spontaneous
  Country: US (occurrence: US)
  Receive Date: 20150831
  Receipt Date: 20150831
  Transmission Date: 20151125
  Serious: No
  Sender: FDA-Public Use
  Company Number: US-ELI_LILLY_AND_COMPANY-US201006004248

PATIENT
  Age: 72 Year
  Sex: Female

DRUGS (3)
  1. CYMBALTA [Suspect]
     Active Substance: DULOXETINE HYDROCHLORIDE
     Dosage: 20 MG, 2/D
     Dates: start: 20100514
  2. CYMBALTA [Suspect]
     Active Substance: DULOXETINE HYDROCHLORIDE
     Indication: PAIN
     Dosage: 30 MG, DAILY (1/D)
     Dates: start: 20100503, end: 20100513
  3. VITAMIN B [Concomitant]
     Active Substance: VITAMIN B

REACTIONS (4)
  - Off label use [Not Recovered/Not Resolved]
  - Somnolence [Unknown]
  - Drug prescribing error [Unknown]
  - Fatigue [Unknown]

NARRATIVE: CASE EVENT DATE: 20100503
